FAERS Safety Report 7692571-7 (Version None)
Quarter: 2011Q3

REPORT INFORMATION
  Report Type: 
  Country: None (occurrence: None)
  Receive Date: 20110819
  Receipt Date: 20110810
  Transmission Date: 20111222
  Serious: Yes (Hospitalization)
  Sender: FDA-Public Use
  Company Number: US-BIOGENIDEC-2006BI006377

PATIENT
  Age: 65 Year
  Sex: Female
  Weight: 86 kg

DRUGS (2)
  1. AVONEX [Suspect]
     Indication: MULTIPLE SCLEROSIS
     Route: 030
     Dates: start: 19960501, end: 20030801
  2. AVONEX [Suspect]
     Route: 030
     Dates: start: 20030801

REACTIONS (9)
  - STAPHYLOCOCCAL INFECTION [None]
  - CELLULITIS STAPHYLOCOCCAL [None]
  - WOUND INFECTION STAPHYLOCOCCAL [None]
  - CELLULITIS [None]
  - MUSCULAR WEAKNESS [None]
  - SKIN ULCER [None]
  - DIABETIC FOOT [None]
  - MEMORY IMPAIRMENT [None]
  - POOR PERIPHERAL CIRCULATION [None]
